FAERS Safety Report 24932947 (Version 1)
Quarter: 2025Q1

REPORT INFORMATION
  Report Type: Report from Study
  Country: CA (occurrence: CA)
  Receive Date: 20250205
  Receipt Date: 20250205
  Transmission Date: 20250409
  Serious: Yes (Hospitalization)
  Sender: ABBVIE
  Company Number: CA-ABBVIE-6113528

PATIENT
  Age: 69 Year
  Sex: Female

DRUGS (1)
  1. BOTOX [Suspect]
     Active Substance: ONABOTULINUMTOXINA
     Indication: Muscle spasticity
     Route: 065
     Dates: start: 20221003, end: 20221003

REACTIONS (10)
  - Cardiac failure [Unknown]
  - Hypertension [Unknown]
  - Contusion [Unknown]
  - Concussion [Unknown]
  - Dysstasia [Not Recovered/Not Resolved]
  - Gait disturbance [Not Recovered/Not Resolved]
  - Fall [Unknown]
  - Head injury [Unknown]
  - Peripheral swelling [Unknown]
  - Animal attack [Unknown]

NARRATIVE: CASE EVENT DATE: 20241201
